FAERS Safety Report 8884014 (Version 2)
Quarter: 2013Q2

REPORT INFORMATION
  Report Type: Spontaneous
  Country: US (occurrence: US)
  Receive Date: 20121102
  Receipt Date: 20130517
  Transmission Date: 20140414
  Serious: No
  Sender: FDA-Public Use
  Company Number: US-ASTRAZENECA-2012SE26696

PATIENT
  Sex: Male

DRUGS (25)
  1. CRESTOR [Suspect]
     Route: 048
  2. OMEPRAZOLE [Suspect]
     Route: 048
  3. PRILOSEC OTC [Concomitant]
  4. ATENOLOL [Concomitant]
  5. DIOVAN [Concomitant]
  6. BACTRIM DS [Concomitant]
  7. VOLTAREN [Concomitant]
  8. PLAVIX [Concomitant]
  9. CYMBALTA [Concomitant]
  10. LAMICTAL [Concomitant]
  11. TENORMIN [Concomitant]
  12. FLONASE [Concomitant]
  13. ADVAIR [Concomitant]
  14. PROVENTIL HFA [Concomitant]
  15. VENTOLIN HFA [Concomitant]
  16. VIBRAMYCIN [Concomitant]
  17. FLOMAX [Concomitant]
  18. DIPROLENE-AF [Concomitant]
  19. KLOR-CON [Concomitant]
  20. BUMEX [Concomitant]
  21. NITROSTAT [Concomitant]
  22. TYLENOL [Concomitant]
     Indication: ARTHRITIS
  23. ACIDOPHILUS [Concomitant]
  24. ASPIRIN [Concomitant]
  25. MULTIVITAMIN [Concomitant]

REACTIONS (2)
  - Injury [Unknown]
  - Wheezing [Unknown]
